FAERS Safety Report 5071656-8 (Version None)
Quarter: 2006Q3

REPORT INFORMATION
  Report Type: 
  Country: None (occurrence: None)
  Receive Date: 20060801
  Receipt Date: 20060719
  Transmission Date: 20061208
  Serious: Yes (Hospitalization, Other)
  Sender: FDA-Public Use
  Company Number: 2006085038

PATIENT
  Age: 43 Year
  Sex: Female
  Weight: 49 kg

DRUGS (3)
  1. SILDENAFIL (PAH)  (SILDENAFIL) [Suspect]
     Indication: PULMONARY HYPERTENSION
     Dosage: 37.5 MG (12.5 MG, 3 IN 1), ORAL
     Route: 048
     Dates: start: 20031217, end: 20050509
  2. FLOLAN [Suspect]
     Indication: PULMONARY HYPERTENSION
     Dosage: 41 NG/KG/MIN (CONTINUOUSLY) INTRAVENOUS
     Route: 042
     Dates: start: 20031112
  3. LASIX [Concomitant]

REACTIONS (18)
  - ANGIOPATHY [None]
  - ARTHRALGIA [None]
  - ASTHENIA [None]
  - BLOOD PRESSURE DECREASED [None]
  - CONDITION AGGRAVATED [None]
  - DIZZINESS POSTURAL [None]
  - FLUSHING [None]
  - HYPOAESTHESIA [None]
  - HYPOAESTHESIA FACIAL [None]
  - HYPOAESTHESIA ORAL [None]
  - HYPOGEUSIA [None]
  - MALAISE [None]
  - MYALGIA [None]
  - PALPITATIONS [None]
  - PHOTOPSIA [None]
  - PULMONARY HYPERTENSION [None]
  - SOMATOFORM DISORDER [None]
  - TRIGEMINAL NERVE DISORDER [None]
